FAERS Safety Report 23248589 (Version 1)
Quarter: 2023Q4

REPORT INFORMATION
  Report Type: Spontaneous
  Country: US (occurrence: US)
  Receive Date: 20231201
  Receipt Date: 20231201
  Transmission Date: 20240109
  Serious: No
  Sender: FDA-Public Use
  Company Number: US-GSKCCFUS-Case-01868705_AE-104338

PATIENT
  Sex: Male

DRUGS (1)
  1. VENTOLIN HFA [Suspect]
     Active Substance: ALBUTEROL SULFATE
     Indication: Asthma
     Dosage: 18 G
     Route: 055
     Dates: start: 202306

REACTIONS (5)
  - Wheezing [Unknown]
  - Chest discomfort [Unknown]
  - Asthma [Unknown]
  - Wrong technique in product usage process [Unknown]
  - Drug ineffective [Unknown]
